FAERS Safety Report 15089904 (Version 1)
Quarter: 2018Q2

REPORT INFORMATION
  Report Type: Report from Study
  Country: CN (occurrence: CN)
  Receive Date: 20180629
  Receipt Date: 20180629
  Transmission Date: 20180711
  Serious: Yes (Death, Other)
  Sender: FDA-Public Use
  Company Number: PHHY2018CN032477

PATIENT
  Sex: Female

DRUGS (1)
  1. SEBIVO [Suspect]
     Active Substance: TELBIVUDINE
     Indication: PRODUCT USED FOR UNKNOWN INDICATION
     Dosage: MATERNAL DOSE:600 OT (UNITS NOT PROVIDED) QD,
     Route: 064

REACTIONS (3)
  - Brain neoplasm [Unknown]
  - Foetal exposure during pregnancy [Unknown]
  - Death [Fatal]
